FAERS Safety Report 21952338 (Version 1)
Quarter: 2023Q1

REPORT INFORMATION
  Report Type: Spontaneous
  Country: US (occurrence: US)
  Receive Date: 20230203
  Receipt Date: 20230203
  Transmission Date: 20230418
  Serious: No
  Sender: FDA-Public Use
  Company Number: US-EXELIXIS-CABO-22052105

PATIENT
  Sex: Male

DRUGS (3)
  1. CABOMETYX [Suspect]
     Active Substance: CABOZANTINIB S-MALATE
     Indication: Prostate cancer
     Dosage: 40 MG
     Route: 048
  2. LUPRON [Concomitant]
     Active Substance: LEUPROLIDE ACETATE
  3. ZOMETA [Concomitant]
     Active Substance: ZOLEDRONIC ACID

REACTIONS (2)
  - Oral pain [Not Recovered/Not Resolved]
  - Off label use [Unknown]
